FAERS Safety Report 6605230-6 (Version None)
Quarter: 2010Q1

REPORT INFORMATION
  Report Type: 
  Country: None (occurrence: None)
  Receive Date: 20100226
  Receipt Date: 20100222
  Transmission Date: 20100710
  Serious: Yes (Hospitalization)
  Sender: FDA-Public Use
  Company Number: SE-BAYER-201016553GPV

PATIENT
  Age: 56 Year
  Sex: Male

DRUGS (7)
  1. CIPROXIN [Suspect]
     Indication: ENTEROCOLITIS INFECTIOUS
     Route: 048
     Dates: start: 20091101, end: 20091201
  2. BETAPRED [Suspect]
     Indication: ENTEROCOLITIS INFECTIOUS
     Route: 048
     Dates: start: 20091101, end: 20091101
  3. PREDNISOLON [Suspect]
     Indication: ENTEROCOLITIS INFECTIOUS
     Dosage: UNIT DOSE: 40 MG
     Route: 048
     Dates: start: 20091101
  4. FLAGYL [Suspect]
     Indication: ENTEROCOLITIS INFECTIOUS
     Route: 048
     Dates: start: 20091101, end: 20091201
  5. SALURES [Concomitant]
     Route: 048
  6. LEVOTHYROXINE SODIUM [Concomitant]
     Route: 048
  7. METOJECT [Concomitant]
     Indication: PSORIATIC ARTHROPATHY
     Route: 065

REACTIONS (2)
  - DIABETES MELLITUS [None]
  - HEPATIC FUNCTION ABNORMAL [None]
